FAERS Safety Report 7076937-4 (Version None)
Quarter: 2010Q4

REPORT INFORMATION
  Report Type: 
  Country: None (occurrence: None)
  Receive Date: 20101029
  Receipt Date: 20101029
  Transmission Date: 20110411
  Serious: Yes (Other)
  Sender: FDA-Public Use
  Company Number: None

PATIENT
  Sex: Female
  Weight: 43.9989 kg

DRUGS (1)
  1. ADVAIR DISKUS 250/50 [Suspect]
     Indication: DYSPNOEA
     Dosage: 250/50 2 X DAILY INHAL
     Route: 055
     Dates: start: 20100830, end: 20100913

REACTIONS (9)
  - ARTHRALGIA [None]
  - BONE PAIN [None]
  - CATARACT [None]
  - DEPRESSION [None]
  - HEADACHE [None]
  - MUSCLE SPASMS [None]
  - PAIN IN EXTREMITY [None]
  - SWELLING [None]
  - UNEMPLOYMENT [None]
